FAERS Safety Report 7273495-6 (Version None)
Quarter: 2011Q1

REPORT INFORMATION
  Report Type: 
  Country: None (occurrence: None)
  Receive Date: 20110126
  Receipt Date: 20110111
  Transmission Date: 20110831
  Serious: Yes (Hospitalization)
  Sender: FDA-Public Use
  Company Number: 2011SP000138

PATIENT
  Sex: Female

DRUGS (7)
  1. ALVESCO [Suspect]
     Dosage: 160 UG;QD;INHALATION ; 320 UG;QD;INHALATION
     Route: 055
     Dates: start: 20100801, end: 20101101
  2. ALVESCO [Suspect]
     Dosage: 160 UG;QD;INHALATION ; 320 UG;QD;INHALATION
     Route: 055
     Dates: start: 20101101, end: 20110110
  3. SERETIDE /01420901/ [Concomitant]
  4. OTHER ANTIHYPERTENSIVES [Concomitant]
  5. ATROVENT [Concomitant]
  6. SEREVENT [Concomitant]
  7. PREV MEDS [Concomitant]

REACTIONS (5)
  - MALAISE [None]
  - VOMITING [None]
  - ABDOMINAL DISCOMFORT [None]
  - PRURITUS [None]
  - OROPHARYNGEAL DISCOMFORT [None]
